FAERS Safety Report 10428604 (Version 1)
Quarter: 2014Q3

REPORT INFORMATION
  Report Type: Spontaneous
  Country: GB (occurrence: None)
  Receive Date: 20140829
  Receipt Date: 20140829
  Transmission Date: 20150326
  Serious: Yes (Other)
  Sender: FDA-Public Use
  Company Number: IMP_07874_2014

PATIENT
  Age: 79 Year
  Sex: Male

DRUGS (3)
  1. CARDBIDOPA AND LEVODOPA [Concomitant]
  2. CABERGOLINE. [Suspect]
     Active Substance: CABERGOLINE
     Indication: PARKINSON^S DISEASE
     Dosage: DF
  3. ENTACAPONE. [Concomitant]
     Active Substance: ENTACAPONE

REACTIONS (1)
  - Somatic delusion [None]

NARRATIVE: CASE EVENT DATE: 2004
